FAERS Safety Report 4351452-7 (Version None)
Quarter: 2004Q2

REPORT INFORMATION
  Report Type: 
  Country: None (occurrence: None)
  Receive Date: 20040420
  Receipt Date: 20040420
  Transmission Date: 20050107
  Serious: Yes (Other)
  Sender: FDA-Public Use
  Company Number: None

PATIENT
  Age: 32 Year
  Sex: Male
  Weight: 95.2554 kg

DRUGS (1)
  1. ZOLOFT [Suspect]
     Indication: DEPRESSION
     Dosage: 1 DAY ORAL
     Route: 048
     Dates: start: 20031101, end: 20040404

REACTIONS (7)
  - ABNORMAL BEHAVIOUR [None]
  - AGITATION [None]
  - ALOPECIA [None]
  - FEAR [None]
  - HOSTILITY [None]
  - INSOMNIA [None]
  - MUSCLE SPASMS [None]
